FAERS Safety Report 18547921 (Version 1)
Quarter: 2020Q4

REPORT INFORMATION
  Report Type: Spontaneous
  Country: FR (occurrence: FR)
  Receive Date: 20201126
  Receipt Date: 20201126
  Transmission Date: 20210114
  Serious: Yes (Other)
  Sender: FDA-Public Use
  Company Number: FR-ADVANZ PHARMA-GSH201808-002915

PATIENT

DRUGS (20)
  1. TAMSULOSINE [TAMSULOSIN HYDROCHLORIDE] [Concomitant]
     Active Substance: TAMSULOSIN HYDROCHLORIDE
     Dosage: UNK
     Dates: end: 20180405
  2. SMECTA [Concomitant]
     Active Substance: MONTMORILLONITE
  3. ALFUZOSIN [Suspect]
     Active Substance: ALFUZOSIN
     Indication: DYSURIA
     Dosage: 10 MG, QD,PROLONGED-RELEASE TABLET,
     Route: 048
     Dates: start: 20180405
  4. PARACETAMOL [Concomitant]
     Active Substance: ACETAMINOPHEN
  5. SIMVASTATINE ARROW [Concomitant]
     Active Substance: SIMVASTATIN
  6. AVODART [Concomitant]
     Active Substance: DUTASTERIDE
     Dosage: UNK
     Dates: end: 20180405
  7. AMLODIPINE BESILATE [Suspect]
     Active Substance: AMLODIPINE BESYLATE
     Indication: HYPERTENSION
     Dosage: 1 DOSAGE FORM, QD
     Route: 048
     Dates: start: 20180406
  8. ESOMEPRAZOLE. [Concomitant]
     Active Substance: ESOMEPRAZOLE MAGNESIUM
     Dosage: UNK
     Dates: end: 20180405
  9. LOVENOX [Suspect]
     Active Substance: ENOXAPARIN SODIUM
     Indication: THROMBOSIS PROPHYLAXIS
     Dosage: 1 DOSAGE FORM, QD
     Route: 058
     Dates: start: 20180406
  10. FUNGIZONE [Suspect]
     Active Substance: AMPHOTERICIN B
     Indication: PRODUCT USED FOR UNKNOWN INDICATION
     Dosage: 3 MG, QD
     Route: 048
     Dates: start: 20180410, end: 20180510
  11. ELUDRILPERIO [Concomitant]
     Active Substance: CHLORHEXIDINE GLUCONATE
  12. BENAZEPRIL [Concomitant]
     Active Substance: BENAZEPRIL HYDROCHLORIDE
     Dosage: UNK
  13. AMOXICILLINE/ACIDE CLAVULANIQ. SANDOZ [Concomitant]
     Active Substance: AMOXICILLIN\CLAVULANIC ACID
     Dosage: UNK
     Dates: start: 20180310, end: 20180317
  14. PHLOROGLUCINOL ARROW [Concomitant]
     Active Substance: PHLOROGLUCINOL
  15. ESIDREX [Suspect]
     Active Substance: HYDROCHLOROTHIAZIDE
     Indication: HYPERTENSION
     Dosage: 12.5 MG, QD
     Route: 048
     Dates: start: 20180401, end: 20180501
  16. PANTOPRAZOLE SODIUM. [Suspect]
     Active Substance: PANTOPRAZOLE SODIUM
     Indication: PRODUCT USED FOR UNKNOWN INDICATION
     Dosage: 20 MG, QD
     Route: 048
     Dates: start: 20180406, end: 20180515
  17. ELIQUIS [Concomitant]
     Active Substance: APIXABAN
     Dosage: 5 MG, UNK
     Dates: end: 20180405
  18. PRIMPERAN [Concomitant]
     Active Substance: METOCLOPRAMIDE HYDROCHLORIDE
     Dosage: UNK
  19. URAPIDIL MYLAN [Concomitant]
     Active Substance: URAPIDIL
     Dosage: UNK
  20. ALLOPURINOL. [Concomitant]
     Active Substance: ALLOPURINOL
     Dosage: UNK
     Dates: end: 20180405

REACTIONS (1)
  - Hypokalaemia [Recovered/Resolved]

NARRATIVE: CASE EVENT DATE: 20180409
